FAERS Safety Report 6859905-4 (Version None)
Quarter: 2010Q3

REPORT INFORMATION
  Report Type: 
  Country: None (occurrence: None)
  Receive Date: 20100720
  Receipt Date: 20100706
  Transmission Date: 20110219
  Serious: Yes (Hospitalization)
  Sender: FDA-Public Use
  Company Number: DE-MPIJNJ-2010-01020

PATIENT

DRUGS (2)
  1. VELCADE [Suspect]
     Indication: MULTIPLE MYELOMA
     Dosage: 2 MG, UNK
     Route: 042
     Dates: start: 20091130, end: 20100107
  2. CAELYX [Concomitant]
     Indication: MULTIPLE MYELOMA
     Dosage: UNK

REACTIONS (10)
  - DEHYDRATION [None]
  - DRY SKIN [None]
  - DYSPNOEA [None]
  - GAIT DISTURBANCE [None]
  - GASTROENTERITIS [None]
  - GENERAL PHYSICAL HEALTH DETERIORATION [None]
  - HYPERURICAEMIA [None]
  - INTENTION TREMOR [None]
  - METABOLIC ACIDOSIS [None]
  - VERTIGO [None]
